FAERS Safety Report 8370881-8 (Version None)
Quarter: 2012Q2

REPORT INFORMATION
  Report Type: 
  Country: None (occurrence: None)
  Receive Date: 20120518
  Receipt Date: 20110811
  Transmission Date: 20120825
  Serious: No
  Sender: FDA-Public Use
  Company Number: US-ASTRAZENECA-2011SE49000

PATIENT
  Age: 50 Year
  Sex: Female

DRUGS (4)
  1. BLOOD PRESSURE MEDICATION [Concomitant]
  2. NEXIUM [Concomitant]
  3. PRILOSEC OTC [Suspect]
     Route: 048
  4. CHOLESTEROL  MEDICATION [Concomitant]

REACTIONS (2)
  - TYPE 2 DIABETES MELLITUS [None]
  - DRUG INEFFECTIVE [None]
